FAERS Safety Report 8681063 (Version 6)
Quarter: 2013Q3

REPORT INFORMATION
  Report Type: Spontaneous
  Country: US (occurrence: US)
  Receive Date: 20120724
  Receipt Date: 20130912
  Transmission Date: 20140515
  Serious: Yes (Hospitalization, Disabling, Other)
  Sender: FDA-Public Use
  Company Number: US-009507513-1203USA03379

PATIENT
  Sex: Female
  Weight: 73.47 kg

DRUGS (2)
  1. FOSAMAX [Suspect]
     Indication: OSTEOPOROSIS
     Dosage: 70 MG, QW
     Route: 048
  2. FOSAMAX [Suspect]
     Indication: BONE LOSS

REACTIONS (36)
  - Breast reconstruction [Unknown]
  - Invasive ductal breast carcinoma [Unknown]
  - Aortic valve replacement [Recovering/Resolving]
  - Modified radical mastectomy [Unknown]
  - Osteonecrosis of jaw [Not Recovered/Not Resolved]
  - Impaired healing [Unknown]
  - Aortic valve calcification [Unknown]
  - Hypertension [Unknown]
  - Hypothyroidism [Unknown]
  - Periodontitis [Not Recovered/Not Resolved]
  - Dental implantation [Unknown]
  - Depression [Unknown]
  - Endodontic procedure [Unknown]
  - Toothache [Unknown]
  - Infection [Unknown]
  - Dental caries [Unknown]
  - Gingival pain [Unknown]
  - Bone disorder [Unknown]
  - Transplant dysfunction [Unknown]
  - Adverse event [Unknown]
  - Mammogram abnormal [Unknown]
  - Ulna fracture [Unknown]
  - Osteoarthritis [Unknown]
  - Periodontitis [Unknown]
  - Gingival disorder [Unknown]
  - Depression [Unknown]
  - Anxiety [Unknown]
  - Skin flap necrosis [Unknown]
  - Cardiac murmur [Unknown]
  - Jaw operation [Unknown]
  - Osteopenia [Unknown]
  - Endodontic procedure [Unknown]
  - Oral disorder [Not Recovered/Not Resolved]
  - Endodontic procedure [Unknown]
  - Endodontic procedure [Unknown]
  - Intraocular pressure increased [Unknown]
